FAERS Safety Report 7372135-5 (Version None)
Quarter: 2011Q1

REPORT INFORMATION
  Report Type: 
  Country: None (occurrence: None)
  Receive Date: 20110324
  Receipt Date: 20110314
  Transmission Date: 20110831
  Serious: Yes (Other)
  Sender: FDA-Public Use
  Company Number: JP-AMGEN-JPNCT2011009256

PATIENT
  Age: 57 Year
  Sex: Male
  Weight: 82 kg

DRUGS (26)
  1. PANITUMUMAB [Suspect]
     Indication: COLORECTAL CANCER
     Dosage: 6 MG/KG, Q2WK
     Route: 041
     Dates: start: 20100804, end: 20100804
  2. TSUMURA HOCHUUEKKITOU [Concomitant]
     Dosage: UNK
     Route: 048
  3. HIRUDOID [Concomitant]
     Dosage: UNK
     Route: 062
  4. MYSER [Concomitant]
     Dosage: UNK
     Route: 062
  5. FLUMETHOLON [Concomitant]
     Dosage: UNK
     Route: 047
  6. PANITUMUMAB [Suspect]
     Dosage: 6 MG/KG, Q2WK
     Route: 041
     Dates: start: 20101222, end: 20110309
  7. IRINOTECAN HYDROCHLORIDE [Suspect]
     Route: 041
     Dates: start: 20100901
  8. CALCIUM LEVOFOLINATE [Concomitant]
     Indication: COLORECTAL CANCER
     Route: 041
     Dates: start: 20100804
  9. NAUZELIN [Concomitant]
     Dosage: UNK
     Route: 048
  10. IRINOTECAN HYDROCHLORIDE [Suspect]
     Indication: COLORECTAL CANCER
     Route: 041
     Dates: start: 20100804, end: 20100831
  11. PREDONINE [Concomitant]
     Dosage: UNK
     Route: 047
  12. KENALOG [Concomitant]
     Dosage: UNK
     Route: 049
  13. FLUOROURACIL [Suspect]
     Indication: COLORECTAL CANCER
     Route: 041
     Dates: start: 20100804
  14. CORTICOSTEROIDS [Concomitant]
     Indication: PROPHYLAXIS
     Dosage: UNK
     Route: 065
  15. MUCOSTA [Concomitant]
     Dosage: UNK
     Route: 048
  16. MINOMYCIN [Concomitant]
     Dosage: UNK
     Route: 048
  17. MAGNESOL [Concomitant]
     Dosage: UNK
     Route: 042
  18. PROPETO [Concomitant]
     Dosage: UNK
     Route: 062
  19. LOXONIN [Concomitant]
     Dosage: UNK
     Route: 048
  20. GASMOTIN [Concomitant]
     Dosage: UNK
     Route: 048
  21. PROMAC [Concomitant]
     Dosage: UNK
     Route: 048
  22. PANITUMUMAB [Suspect]
     Dosage: 6 MG/KG, Q2WK
     Route: 041
     Dates: start: 20100901, end: 20101124
  23. LOCOID [Concomitant]
     Dosage: UNK
     Route: 062
  24. NORVASC [Concomitant]
     Dosage: UNK
     Route: 048
  25. DIOVAN [Concomitant]
     Dosage: UNK
     Route: 048
  26. DERMOVATE [Concomitant]
     Dosage: UNK
     Route: 062

REACTIONS (8)
  - STOMATITIS [None]
  - RASH [None]
  - CHEILITIS [None]
  - BONE MARROW FAILURE [None]
  - EYE DISCHARGE [None]
  - DRY SKIN [None]
  - LOOSE TOOTH [None]
  - HYPOMAGNESAEMIA [None]
